FAERS Safety Report 14177256 (Version 3)
Quarter: 2017Q4

REPORT INFORMATION
  Report Type: Spontaneous
  Country: GB (occurrence: GB)
  Receive Date: 20171110
  Receipt Date: 20171204
  Transmission Date: 20180321
  Serious: Yes (Hospitalization, Other)
  Sender: FDA-Public Use
  Company Number: GB-009507513-1711GBR004108

PATIENT
  Age: 68 Year
  Sex: Male
  Weight: 93 kg

DRUGS (33)
  1. BISOPROLOL [Concomitant]
     Active Substance: BISOPROLOL
     Indication: ATRIAL FIBRILLATION
     Dosage: UNKNOWN, 1 IN 1 D
     Route: 048
     Dates: start: 20160312
  2. GLICLAZIDE [Concomitant]
     Active Substance: GLICLAZIDE
     Indication: TYPE 2 DIABETES MELLITUS
     Dosage: 80 MG, 3 IN 1 D
     Route: 048
  3. MOVICOL [Concomitant]
     Active Substance: POLYETHYLENE GLYCOL 3350\POTASSIUM CHLORIDE\SODIUM BICARBONATE\SODIUM CHLORIDE
     Indication: CONSTIPATION
     Dosage: UNKNOWN
     Route: 048
     Dates: start: 20160505
  4. REVLIMID [Suspect]
     Active Substance: LENALIDOMIDE
     Indication: PLASMA CELL MYELOMA
     Dosage: DOSE REDUCED, 1 IN 21 D
     Route: 048
     Dates: start: 20170610, end: 20170624
  5. DARATUMUMAB [Concomitant]
     Active Substance: DARATUMUMAB
     Indication: PLASMA CELL MYELOMA
     Dosage: DOSE REDUCED, 1 IN 28 D
     Route: 041
     Dates: start: 20160610, end: 20160624
  6. DARATUMUMAB [Concomitant]
     Active Substance: DARATUMUMAB
     Dosage: 1584 MG, 1 IN 28 D
     Route: 041
     Dates: start: 20160624
  7. ATORVASTATIN [Concomitant]
     Active Substance: ATORVASTATIN
     Indication: HYPERTENSION
     Dosage: 10 MG, 1 IN 1 D
     Route: 048
  8. DARBEPOETIN ALFA [Concomitant]
     Active Substance: DARBEPOETIN ALFA
     Indication: ANAEMIA
     Dosage: 150 MCG, 1 IN 2 WK
     Route: 058
     Dates: start: 20170131
  9. GLICLAZIDE [Concomitant]
     Active Substance: GLICLAZIDE
     Dosage: REDUCED DOSE. 40 MG, 1 D
     Route: 048
     Dates: start: 201710
  10. DARATUMUMAB [Concomitant]
     Active Substance: DARATUMUMAB
     Dosage: ONCE ON DAY 1 EVERY 28 DAYS. 1584 MG (16 MG/KG) MONTHLY. (1584 MG,1 IN 28 D)
     Route: 041
     Dates: start: 20160518, end: 20160610
  11. DEXAMETHASONE. [Suspect]
     Active Substance: DEXAMETHASONE
     Dosage: UNKNOWN, 1 IN 1 WK
     Route: 048
     Dates: start: 20160610, end: 20160624
  12. DEXAMETHASONE. [Suspect]
     Active Substance: DEXAMETHASONE
     Dosage: ON DAYS 1, 8, 15 AND 22 (20 MG,1 IN 1 WK)
     Route: 048
     Dates: start: 20160518, end: 20160610
  13. ACYCLOVIR. [Concomitant]
     Active Substance: ACYCLOVIR
     Indication: ANTIVIRAL PROPHYLAXIS
     Dosage: 400 MG, 2 IN 1 D
     Route: 048
     Dates: start: 20160518
  14. CALCIUM CARBONATE. [Concomitant]
     Active Substance: CALCIUM CARBONATE
     Indication: PROPHYLAXIS
     Dosage: 1500 MG, 1 IN 1 D
     Route: 048
  15. FOLIC ACID. [Concomitant]
     Active Substance: FOLIC ACID
     Indication: FOLATE DEFICIENCY
     Dosage: 5 MG, 1 IN 1 D
     Route: 065
     Dates: start: 20170425
  16. OMEPRAZOLE. [Concomitant]
     Active Substance: OMEPRAZOLE
     Indication: PROPHYLAXIS
     Dosage: 20 MG, 1 IN 1 D
     Route: 048
     Dates: start: 20170518
  17. SITAGLIPTIN [Concomitant]
     Active Substance: SITAGLIPTIN
     Indication: TYPE 2 DIABETES MELLITUS
     Dosage: 100 MG, 1 IN 1 D
     Route: 048
  18. DEXAMETHASONE. [Suspect]
     Active Substance: DEXAMETHASONE
     Indication: PLASMA CELL MYELOMA
     Dosage: 20 MG, 1 IN 1 WK
     Route: 048
     Dates: start: 20160624
  19. REVLIMID [Suspect]
     Active Substance: LENALIDOMIDE
     Dosage: 15 MG,1 IN 21D
     Route: 048
     Dates: start: 20160624
  20. VENTOLIN [Concomitant]
     Active Substance: ALBUTEROL SULFATE
     Indication: LOWER RESPIRATORY TRACT INFECTION
     Dosage: UNKNOWN
     Route: 055
     Dates: start: 20170309
  21. RIVAROXABAN [Concomitant]
     Active Substance: RIVAROXABAN
     Indication: ATRIAL FIBRILLATION
     Dosage: 20 MG, 1 IN 1 D
     Route: 048
     Dates: start: 20160520
  22. REVLIMID [Suspect]
     Active Substance: LENALIDOMIDE
     Dosage: ON DAYS 1-21 INCLUSIVE. (15MG,1 IN 21 D)
     Route: 048
     Dates: start: 20160518, end: 20170610
  23. AMITRIPTYLINE HYDROCHLORIDE. [Concomitant]
     Active Substance: AMITRIPTYLINE HYDROCHLORIDE
     Indication: BACK PAIN
     Dosage: 10 MG, 1 IN 1 D
     Route: 048
  24. AMLODIPINE [Concomitant]
     Active Substance: AMLODIPINE BESYLATE
     Indication: HYPERTENSION
     Dosage: 10 MG, 1 IN 1 D
     Route: 048
  25. ASPIRIN. [Concomitant]
     Active Substance: ASPIRIN
     Indication: HYPERTENSION
     Dosage: 150 MG, 1 IN 1 D
     Route: 048
  26. OXYCODONE [Concomitant]
     Active Substance: OXYCODONE
     Indication: BACK PAIN
     Dosage: 20 MG, 2 IN 1 D
     Route: 048
  27. CHLORPHENAMINE [Concomitant]
     Active Substance: CHLORPHENIRAMINE MALEATE
     Indication: SKIN ULCER
     Dosage: UNKNOWN, 3 IN 1 D
     Route: 065
  28. CALCIUM GLUCONATE. [Concomitant]
     Active Substance: CALCIUM GLUCONATE
     Indication: PROPHYLAXIS
     Dosage: 1500 MG, 1 IN 1 D
     Route: 048
  29. SULFAMETHOXAZOLE (+) TRIMETHOPRIM [Concomitant]
     Active Substance: SULFAMETHOXAZOLE\TRIMETHOPRIM
     Indication: PROPHYLAXIS
     Dosage: 480 MG, 3 IN 1 WK
     Route: 048
     Dates: start: 20160518
  30. DARBEPOETIN ALFA [Concomitant]
     Active Substance: DARBEPOETIN ALFA
     Dosage: 200 MCG, 1 IN 2 WK
     Route: 058
     Dates: start: 20170821
  31. QUININE [Concomitant]
     Active Substance: QUININE
     Indication: MUSCLE SPASMS
     Dosage: 200 MG, UNKNOWN
     Route: 048
  32. VALSARTAN. [Concomitant]
     Active Substance: VALSARTAN
     Indication: HYPERTENSION
     Dosage: 160 MG, 1 IN 1 D
     Route: 048
  33. ZOLEDRONIC ACID [Concomitant]
     Active Substance: ZOLEDRONIC ACID
     Indication: ADVERSE EVENT
     Dosage: 4 MG, 1 IN 1 M
     Route: 041
     Dates: start: 20170722

REACTIONS (3)
  - Lower respiratory tract infection [Recovered/Resolved]
  - Hypoglycaemia [Unknown]
  - Hyperglycaemia [Unknown]

NARRATIVE: CASE EVENT DATE: 20160610
